FAERS Safety Report 16392902 (Version 1)
Quarter: 2019Q2

REPORT INFORMATION
  Report Type: Other
  Country: DE (occurrence: DE)
  Receive Date: 20190605
  Receipt Date: 20190605
  Transmission Date: 20190711
  Serious: Yes (Other)
  Sender: FDA-Public Use
  Company Number: DE-LUPIN PHARMACEUTICALS INC.-2019-03394

PATIENT
  Age: 1 Day
  Sex: Female
  Weight: 2.06 kg

DRUGS (4)
  1. QUETIAPINE. [Suspect]
     Active Substance: QUETIAPINE
     Indication: BORDERLINE PERSONALITY DISORDER
     Dosage: 150 MILLIGRAM, QD, (150 [MG/D ])
     Route: 064
     Dates: start: 20181012, end: 20181012
  2. PROTAPHANE [Concomitant]
     Active Substance: INSULIN HUMAN
     Indication: TYPE 2 DIABETES MELLITUS
     Dosage: UNK
     Route: 064
     Dates: start: 20181012, end: 20181012
  3. VALDOXAN [Suspect]
     Active Substance: AGOMELATINE
     Indication: BORDERLINE PERSONALITY DISORDER
     Dosage: 25 MILLIGRAM, QD, (25 [MG/D ])
     Route: 064
     Dates: start: 20180203, end: 20181012
  4. ACTRAPID [Concomitant]
     Active Substance: INSULIN HUMAN
     Indication: TYPE 2 DIABETES MELLITUS
     Dosage: UNK
     Route: 064
     Dates: start: 20181012, end: 20181012

REACTIONS (4)
  - Foetal exposure during pregnancy [Unknown]
  - Selective eating disorder [Recovered/Resolved]
  - Bradycardia neonatal [Recovered/Resolved]
  - Respiratory disorder neonatal [Recovered/Resolved]

NARRATIVE: CASE EVENT DATE: 20181012
